FAERS Safety Report 11515204 (Version 5)
Quarter: 2015Q4

REPORT INFORMATION
  Report Type: Report from Study
  Country: KR (occurrence: KR)
  Receive Date: 20150916
  Receipt Date: 20151215
  Transmission Date: 20160304
  Serious: Yes (Death, Hospitalization)
  Sender: FDA-Public Use
  Company Number: KR-TAKEDA-2015MPI005566

PATIENT

DRUGS (88)
  1. VELCADE [Suspect]
     Active Substance: BORTEZOMIB
     Dosage: 2.2 MG, UNK
     Route: 058
     Dates: start: 20150817
  2. CEFEPIME [Concomitant]
     Active Substance: CEFEPIME HYDROCHLORIDE
     Dosage: 2 G, BID
     Route: 042
     Dates: start: 20150811, end: 20150812
  3. LEVOFLOXACIN. [Concomitant]
     Active Substance: LEVOFLOXACIN
     Indication: INFECTION PROPHYLAXIS
     Dosage: UNK
     Route: 042
     Dates: start: 20150708, end: 20150710
  4. CALCIUM ACETATE. [Concomitant]
     Active Substance: CALCIUM ACETATE
     Dosage: UNK, TID
     Route: 048
     Dates: start: 20150712, end: 20150809
  5. ZOLPIDEM TARTRATE. [Concomitant]
     Active Substance: ZOLPIDEM TARTRATE
     Dosage: UNK
     Route: 048
     Dates: start: 20150711, end: 20150711
  6. FUROSEMIDE. [Concomitant]
     Active Substance: FUROSEMIDE
     Dosage: 40 MG, UNK
     Route: 042
     Dates: start: 20150812, end: 20150812
  7. SODIUM BICARBONATE. [Concomitant]
     Active Substance: SODIUM BICARBONATE
     Dosage: 440 ML, UNK
     Route: 042
     Dates: start: 20150810, end: 20150810
  8. CIPROFLOXACIN. [Concomitant]
     Active Substance: CIPROFLOXACIN
     Indication: INFECTION PROPHYLAXIS
     Dosage: 500 MG, BID
     Route: 048
     Dates: start: 20150727, end: 20150809
  9. PANTOPRAZOLE [Concomitant]
     Active Substance: PANTOPRAZOLE SODIUM
     Indication: GASTROINTESTINAL DISORDER THERAPY
     Dosage: 40 MG, UNK
     Route: 042
     Dates: start: 20150808, end: 20150809
  10. PIPRINHYDRINATE [Concomitant]
     Dosage: 3 MG, UNK
     Route: 042
     Dates: start: 20150710, end: 20150710
  11. METHYLPREDNISOLONE ACEPONATE [Concomitant]
     Active Substance: METHYLPREDNISOLONE ACEPONATE
     Indication: RASH
     Dosage: UNK
     Route: 061
     Dates: start: 20150710, end: 20150717
  12. PREDNICARBATE. [Concomitant]
     Active Substance: PREDNICARBATE
     Indication: RASH
     Dosage: UNK
     Route: 061
     Dates: start: 20150710, end: 20150717
  13. PREDNISONE. [Suspect]
     Active Substance: PREDNISONE
     Indication: PLASMA CELL MYELOMA
     Dosage: 105 MG, TID
     Route: 048
     Dates: start: 20150727, end: 20150730
  14. CEFEPIME [Concomitant]
     Active Substance: CEFEPIME HYDROCHLORIDE
     Indication: INFECTION PROPHYLAXIS
     Dosage: UNK, TID
     Route: 042
     Dates: start: 20150702, end: 20150711
  15. CEFEPIME [Concomitant]
     Active Substance: CEFEPIME HYDROCHLORIDE
     Indication: RENAL REPLACEMENT THERAPY
     Dosage: 2 G, UNK
     Route: 042
     Dates: start: 20150808, end: 20150811
  16. LACTULOSE. [Concomitant]
     Active Substance: LACTULOSE
     Indication: CONSTIPATION
     Dosage: 15 ML, BID
     Route: 048
     Dates: start: 20150709, end: 20150709
  17. PROPACETAMOL HCL [Concomitant]
     Indication: PYREXIA
     Dosage: UNK, QD
     Route: 042
     Dates: start: 20150709, end: 20150709
  18. MELOXICAM. [Concomitant]
     Active Substance: MELOXICAM
     Indication: PAIN PROPHYLAXIS
     Dosage: 7.5 MG, UNK
     Route: 048
     Dates: start: 20150714, end: 20150809
  19. PAMIDRONATE [Concomitant]
     Active Substance: PAMIDRONATE DISODIUM
     Indication: BONE DISORDER
     Dosage: 90 MG, UNK
     Route: 042
     Dates: start: 20150727, end: 20150727
  20. FLUCONAZOLE. [Concomitant]
     Active Substance: FLUCONAZOLE
     Dosage: 200 MG, UNK
     Route: 042
     Dates: start: 20150811, end: 20150816
  21. FILGRASTIM [Concomitant]
     Active Substance: FILGRASTIM
     Dosage: 300 MG, UNK
     Route: 042
     Dates: start: 20150805, end: 20150805
  22. PIPRINHYDRINATE [Concomitant]
     Indication: RASH
     Dosage: 3 MG, BID
     Route: 042
     Dates: start: 20150809, end: 20150810
  23. PREPENEM [Concomitant]
     Indication: INFECTION PROPHYLAXIS
     Dosage: 500 MG, QID
     Route: 042
     Dates: start: 20150711, end: 20150716
  24. DARATUMUMAB [Suspect]
     Active Substance: DARATUMUMAB
     Indication: PLASMA CELL MYELOMA
     Dosage: UNK
     Route: 042
  25. VITAMIN B COMPLEX [Concomitant]
     Active Substance: CYANOCOBALAMIN\DEXPANTHENOL\NIACINAMIDE\PYRIDOXINE HYDROCHLORIDE\RIBOFLAVIN 5^-PHOSPHATE SODIUM\THIAMINE HYDROCHLORIDE\VITAMIN B COMPLEX
     Indication: NUTRITIONAL SUPPLEMENTATION
     Dosage: UNK
     Route: 042
     Dates: start: 20150702, end: 20150716
  26. AUGMENTIN [Concomitant]
     Active Substance: AMOXICILLIN\CLAVULANATE POTASSIUM
     Indication: INFECTION PROPHYLAXIS
     Dosage: UNK, TID
     Route: 048
     Dates: start: 20150717, end: 20150726
  27. MAGNESIUM SULPHATE                 /01097001/ [Concomitant]
     Active Substance: MAGNESIUM SULFATE
     Indication: HYPOMAGNESAEMIA
     Dosage: 60 ML, UNK
     Route: 042
     Dates: start: 20150724, end: 20150724
  28. MAGNESIUM SULPHATE                 /01097001/ [Concomitant]
     Active Substance: MAGNESIUM SULFATE
     Dosage: 60 ML, UNK
     Route: 042
     Dates: start: 20150727, end: 20150727
  29. ALLOPURINOL. [Concomitant]
     Active Substance: ALLOPURINOL
     Indication: PROPHYLAXIS
     Dosage: 300 MG, UNK
     Route: 048
     Dates: start: 20150724, end: 20150729
  30. FUROSEMIDE. [Concomitant]
     Active Substance: FUROSEMIDE
     Dosage: 180 MG, UNK
     Route: 042
     Dates: start: 20150810, end: 20150810
  31. FLUCONAZOLE. [Concomitant]
     Active Substance: FLUCONAZOLE
     Indication: INFECTION PROPHYLAXIS
     Dosage: 200 MG, UNK
     Route: 048
     Dates: start: 20150727, end: 20150809
  32. POTASSIUM CHLORIDE. [Concomitant]
     Active Substance: POTASSIUM CHLORIDE
     Dosage: 40 ML, TID
     Route: 042
     Dates: start: 20150813, end: 20150813
  33. PIPRINHYDRINATE [Concomitant]
     Dosage: 3 MG, UNK
     Route: 042
     Dates: start: 20150729, end: 20150729
  34. HYDROCORTISONE SODIUM SUCCINATE [Concomitant]
     Active Substance: HYDROCORTISONE SODIUM SUCCINATE
     Indication: RASH
     Dosage: 100 MG, UNK
     Route: 042
     Dates: start: 20150710, end: 20150710
  35. DESOXYMETHASONE [Concomitant]
     Indication: RASH
     Dosage: UNK
     Route: 061
     Dates: start: 20150710, end: 20150717
  36. PHYTOMENADIONE [Concomitant]
     Active Substance: PHYTONADIONE
     Indication: RASH
     Dosage: 10 MG, TID
     Route: 042
     Dates: start: 20150813, end: 20150813
  37. SALBUTAMOL SULFATE [Concomitant]
     Active Substance: ALBUTEROL SULFATE
     Indication: EMPHYSEMA
     Dosage: UNK, QID
     Route: 055
     Dates: start: 20150701, end: 20150810
  38. CALCIUM ACETATE. [Concomitant]
     Active Substance: CALCIUM ACETATE
     Indication: HYPERPHOSPHATAEMIA
     Dosage: UNK, TID
     Route: 048
     Dates: start: 20150709, end: 20150711
  39. ZOLPIDEM TARTRATE. [Concomitant]
     Active Substance: ZOLPIDEM TARTRATE
     Dosage: UNK, QD
     Route: 048
     Dates: start: 20150710, end: 20150710
  40. PROPACETAMOL HCL [Concomitant]
     Dosage: UNK
     Route: 042
     Dates: start: 20150803, end: 20150803
  41. FUROSEMIDE. [Concomitant]
     Active Substance: FUROSEMIDE
     Dosage: 20 MG, BID
     Route: 042
     Dates: start: 20150729, end: 20150729
  42. FUROSEMIDE. [Concomitant]
     Active Substance: FUROSEMIDE
     Dosage: 70 MG, UNK
     Route: 042
     Dates: start: 20150808, end: 20150808
  43. FUROSEMIDE. [Concomitant]
     Active Substance: FUROSEMIDE
     Dosage: 160 MG, UNK
     Route: 042
     Dates: start: 20150809, end: 20150809
  44. SODIUM BICARBONATE. [Concomitant]
     Active Substance: SODIUM BICARBONATE
     Dosage: 440 ML, UNK
     Route: 042
     Dates: start: 20150808, end: 20150808
  45. RANITIDINE [Concomitant]
     Active Substance: RANITIDINE\RANITIDINE HYDROCHLORIDE
     Indication: GASTROINTESTINAL DISORDER THERAPY
     Dosage: 150 MG, BID
     Route: 048
     Dates: start: 20150727, end: 20150809
  46. FILGRASTIM [Concomitant]
     Active Substance: FILGRASTIM
     Dosage: 300 MG, UNK
     Route: 042
     Dates: start: 20150715, end: 20150716
  47. POTASSIUM CHLORIDE. [Concomitant]
     Active Substance: POTASSIUM CHLORIDE
     Indication: ELECTROLYTE IMBALANCE
     Dosage: 40 ML, UNK
     Route: 042
     Dates: start: 20150809, end: 20150810
  48. QUETIAPINE [Concomitant]
     Active Substance: QUETIAPINE
     Indication: DELIRIUM
     Dosage: 12.5 G, TID
     Route: 048
     Dates: start: 20150803, end: 20150804
  49. PANTOPRAZOLE [Concomitant]
     Active Substance: PANTOPRAZOLE SODIUM
     Dosage: 200 MG, UNK
     Route: 042
     Dates: start: 20150811, end: 20150818
  50. PHYTOMENADIONE [Concomitant]
     Active Substance: PHYTONADIONE
     Dosage: 10 MG, UNK
     Route: 042
     Dates: start: 20150710, end: 20150710
  51. IPRATROPIUM BROMIDE. [Concomitant]
     Active Substance: IPRATROPIUM BROMIDE
     Indication: DYSPNOEA
     Dosage: UNK, QID
     Route: 055
     Dates: start: 20150808, end: 20150810
  52. BEPOTASTINE BESILATE [Concomitant]
     Active Substance: BEPOTASTINE BESILATE
     Indication: RASH
     Dosage: 10 MG, BID
     Route: 048
     Dates: start: 20150710, end: 20150809
  53. FUROSEMIDE. [Concomitant]
     Active Substance: FUROSEMIDE
     Indication: FLUID RETENTION
     Dosage: 20 MG, UNK
     Route: 042
     Dates: start: 20150725, end: 20150725
  54. FUROSEMIDE. [Concomitant]
     Active Substance: FUROSEMIDE
     Dosage: 20 MG, BID
     Route: 042
     Dates: start: 20150727, end: 20150804
  55. PAMIDRONATE [Concomitant]
     Active Substance: PAMIDRONATE DISODIUM
     Indication: PROPHYLAXIS
     Dosage: 90 MG, UNK
     Route: 042
     Dates: start: 20150727, end: 20150727
  56. FILGRASTIM [Concomitant]
     Active Substance: FILGRASTIM
     Indication: NEUTROPHIL COUNT DECREASED
     Dosage: 300 MG, UNK
     Route: 042
     Dates: start: 20150801, end: 20150801
  57. FILGRASTIM [Concomitant]
     Active Substance: FILGRASTIM
     Dosage: 300 MG, UNK
     Route: 042
     Dates: start: 20150710, end: 20150710
  58. METHYLPREDISOLONE [Concomitant]
     Active Substance: METHYLPREDNISOLONE
     Indication: RASH
     Dosage: 4 MG, BID
     Route: 048
     Dates: start: 20150715, end: 20150717
  59. ZOLPIDEM TARTRATE. [Concomitant]
     Active Substance: ZOLPIDEM TARTRATE
     Indication: INSOMNIA
     Dosage: UNK, QD
     Route: 048
     Dates: start: 20150709, end: 20150709
  60. FUROSEMIDE. [Concomitant]
     Active Substance: FUROSEMIDE
     Dosage: 20 MG, UNK
     Route: 042
     Dates: start: 20150811, end: 20150811
  61. SUCRALFATE. [Concomitant]
     Active Substance: SUCRALFATE
     Indication: GASTROINTESTINAL DISORDER THERAPY
     Dosage: 15 ML, QID
     Route: 048
     Dates: start: 20150727, end: 20150809
  62. FILGRASTIM [Concomitant]
     Active Substance: FILGRASTIM
     Dosage: 300 MG, UNK
     Route: 042
     Dates: start: 20150711, end: 20150711
  63. POTASSIUM CHLORIDE. [Concomitant]
     Active Substance: POTASSIUM CHLORIDE
     Dosage: 20 ML, TID
     Route: 042
     Dates: start: 20150812, end: 20150812
  64. POTASSIUM CHLORIDE. [Concomitant]
     Active Substance: POTASSIUM CHLORIDE
     Dosage: 20 ML, TID
     Route: 042
     Dates: start: 20150814, end: 20150814
  65. PIPRINHYDRINATE [Concomitant]
     Indication: PREMEDICATION
     Dosage: 3 MG, UNK
     Route: 042
     Dates: start: 20150713, end: 20150714
  66. METHYLPREDISOLONE [Concomitant]
     Active Substance: METHYLPREDNISOLONE
     Dosage: 8 MG, BID
     Route: 048
     Dates: start: 20150710, end: 20150714
  67. PETHIDINE HCL [Concomitant]
     Indication: BIOPSY BONE MARROW
     Dosage: 25 MG, UNK
     Route: 042
     Dates: start: 20150713, end: 20150713
  68. MELPHALAN [Suspect]
     Active Substance: MELPHALAN
     Indication: PLASMA CELL MYELOMA
     Dosage: 16 MG, TID
     Route: 048
     Dates: start: 20150727, end: 20150730
  69. COZAAR PLUS [Concomitant]
     Indication: HYPERTENSION
     Dosage: UNK
     Route: 048
     Dates: start: 20150709, end: 20150809
  70. POLYCARBOPHIL CALCIUM [Concomitant]
     Active Substance: CALCIUM POLYCARBOPHIL
     Indication: CONSTIPATION
     Dosage: UNK, TID
     Route: 048
     Dates: start: 20150709, end: 20150809
  71. IPRATROPIUM BROMIDE. [Concomitant]
     Active Substance: IPRATROPIUM BROMIDE
     Indication: EMPHYSEMA
     Dosage: UNK, QID
     Route: 055
     Dates: start: 20150701, end: 20150716
  72. ZOLPIDEM TARTRATE. [Concomitant]
     Active Substance: ZOLPIDEM TARTRATE
     Dosage: UNK
     Route: 048
     Dates: start: 20150715, end: 20150717
  73. MAGNESIUM SULPHATE                 /01097001/ [Concomitant]
     Active Substance: MAGNESIUM SULFATE
     Dosage: 60 MG, UNK
     Route: 042
     Dates: start: 20150711, end: 20150711
  74. FUROSEMIDE. [Concomitant]
     Active Substance: FUROSEMIDE
     Dosage: 20 MG, BID
     Route: 042
     Dates: start: 20150729, end: 20150805
  75. SODIUM BICARBONATE. [Concomitant]
     Active Substance: SODIUM BICARBONATE
     Dosage: 40 MG, TID
     Route: 042
     Dates: start: 20150727, end: 20150729
  76. SODIUM BICARBONATE. [Concomitant]
     Active Substance: SODIUM BICARBONATE
     Dosage: 280 ML, UNK
     Route: 042
     Dates: start: 20150810, end: 20150810
  77. SODIUM BICARBONATE. [Concomitant]
     Active Substance: SODIUM BICARBONATE
     Dosage: 40 ML, UNK
     Route: 042
     Dates: start: 20150811, end: 20150818
  78. ACYCLOVIR                          /00587301/ [Concomitant]
     Active Substance: ACYCLOVIR
     Indication: INFECTION PROPHYLAXIS
     Dosage: 500 MG, BID
     Route: 048
     Dates: start: 20150727, end: 20150809
  79. FILGRASTIM [Concomitant]
     Active Substance: FILGRASTIM
     Dosage: 300 MG, UNK
     Route: 042
     Dates: start: 20150717, end: 20150717
  80. VELCADE [Suspect]
     Active Substance: BORTEZOMIB
     Indication: PLASMA CELL MYELOMA
     Dosage: 2.2 MG, UNK
     Route: 058
     Dates: start: 20150727, end: 20150803
  81. SODIUM BICARBONATE. [Concomitant]
     Active Substance: SODIUM BICARBONATE
     Indication: ELECTROLYTE IMBALANCE
     Dosage: 40 MG, BID
     Route: 042
     Dates: start: 20150724, end: 20150726
  82. SODIUM BICARBONATE. [Concomitant]
     Active Substance: SODIUM BICARBONATE
     Dosage: 400 ML, UNK
     Route: 042
     Dates: start: 20150809, end: 20150809
  83. SODIUM BICARBONATE. [Concomitant]
     Active Substance: SODIUM BICARBONATE
     Dosage: 40 ML, TID
     Route: 042
     Dates: start: 20150727, end: 20150805
  84. FILGRASTIM [Concomitant]
     Active Substance: FILGRASTIM
     Dosage: 300 MG, UNK
     Route: 042
     Dates: start: 20150808, end: 20150820
  85. POTASSIUM CHLORIDE. [Concomitant]
     Active Substance: POTASSIUM CHLORIDE
     Indication: HYPOKALAEMIA
     Dosage: 40 ML, UNK
     Route: 042
     Dates: start: 20150803, end: 20150803
  86. POTASSIUM CHLORIDE. [Concomitant]
     Active Substance: POTASSIUM CHLORIDE
     Dosage: 40 ML, TID
     Route: 042
     Dates: start: 20150811, end: 20150811
  87. ACYCLOVIR                          /00587301/ [Concomitant]
     Active Substance: ACYCLOVIR
     Indication: INFECTION PROPHYLAXIS
     Dosage: 500 MG, UNK
     Route: 042
     Dates: start: 20150811, end: 20150820
  88. POTASSIUM CHLORIDE. [Concomitant]
     Active Substance: POTASSIUM CHLORIDE
     Indication: HYPOKALAEMIA
     Dosage: 600 ?G, UNK
     Route: 048
     Dates: start: 20150805, end: 20150806

REACTIONS (1)
  - Tumour lysis syndrome [Fatal]

NARRATIVE: CASE EVENT DATE: 20150808
